FAERS Safety Report 18334714 (Version 1)
Quarter: 2020Q4

REPORT INFORMATION
  Report Type: Report from Study
  Country: US (occurrence: US)
  Receive Date: 20201001
  Receipt Date: 20201001
  Transmission Date: 20210113
  Serious: Yes (Other)
  Sender: FDA-Public Use
  Company Number: US-INCYTE CORPORATION-2020IN009449

PATIENT

DRUGS (1)
  1. JAKAFI [Suspect]
     Active Substance: RUXOLITINIB
     Indication: BONE NEOPLASM
     Dosage: 10 MILLIGRAM, BID
     Route: 048

REACTIONS (3)
  - Malignant melanoma [Unknown]
  - Skin cancer [Unknown]
  - Off label use [Unknown]
